FAERS Safety Report 4360249-3 (Version None)
Quarter: 2004Q2

REPORT INFORMATION
  Report Type: 
  Country: None (occurrence: None)
  Receive Date: 20040518
  Receipt Date: 20040518
  Transmission Date: 20050107
  Serious: Yes (Life-Threatening, Hospitalization)
  Sender: FDA-Public Use
  Company Number: None

PATIENT
  Sex: Female
  Weight: 49 kg

DRUGS (11)
  1. COUMADIN [Suspect]
     Indication: DEEP VEIN THROMBOSIS
     Dosage: 5 MG PO QD
     Route: 048
     Dates: start: 20031224, end: 20040105
  2. ERYTHROMYCIN [Suspect]
     Indication: PNEUMONIA
     Dates: start: 20031224, end: 20040105
  3. PREMARIN [Concomitant]
  4. CAPTOPRIL [Concomitant]
  5. VITAMIN B COMPLEX CAP [Concomitant]
  6. LASIX [Concomitant]
  7. SPIRONILACTONE [Concomitant]
  8. IRON [Concomitant]
  9. LANOXIN [Concomitant]
  10. SYNTHROID [Concomitant]
  11. POTASSIUM [Concomitant]

REACTIONS (8)
  - ASTHENIA [None]
  - DIARRHOEA [None]
  - DRUG INTERACTION [None]
  - GASTROINTESTINAL HAEMORRHAGE [None]
  - HEADACHE [None]
  - INTERNATIONAL NORMALISED RATIO INCREASED [None]
  - RECTAL HAEMORRHAGE [None]
  - SUBDURAL HAEMATOMA [None]
